FAERS Safety Report 11105309 (Version 1)
Quarter: 2015Q2

REPORT INFORMATION
  Report Type: Spontaneous
  Country: IN (occurrence: IN)
  Receive Date: 20150512
  Receipt Date: 20150512
  Transmission Date: 20150821
  Serious: Yes (Hospitalization)
  Sender: FDA-Public Use
  Company Number: IN-MYLANLABS-2015M1015524

PATIENT

DRUGS (6)
  1. VALPROATE [Suspect]
     Active Substance: VALPROATE SODIUM
     Dosage: AND THEN GRADUALLY INCREASED TO 1500MG IN DIVIDED DOSES OVER COUPLE OF DAYS
     Route: 065
  2. VALPROATE [Suspect]
     Active Substance: VALPROATE SODIUM
     Indication: MANIA
     Dosage: AND THEN INCREASED TO 1500MG ON DAY 22 OF ADMISSION
     Route: 065
  3. VALPROATE [Suspect]
     Active Substance: VALPROATE SODIUM
     Dosage: AND THEN REDUCED TO 250MG TWICE DAILY
     Route: 065
  4. OLANZAPINE. [Concomitant]
     Active Substance: OLANZAPINE
     Indication: MANIA
     Dosage: AND THEN INCREASED TO 15MG ON DAY 22 OF ADMISSION
     Route: 065
  5. TOPIRAMATE. [Suspect]
     Active Substance: TOPIRAMATE
     Indication: VASCULAR HEADACHE
     Route: 065
  6. OLANZAPINE. [Concomitant]
     Active Substance: OLANZAPINE
     Route: 065

REACTIONS (2)
  - Delirium [Recovered/Resolved]
  - Hyperammonaemia [Recovered/Resolved]
